FAERS Safety Report 7585911-0 (Version None)
Quarter: 2011Q3

REPORT INFORMATION
  Report Type: 
  Country: None (occurrence: None)
  Receive Date: 20110701
  Receipt Date: 20110629
  Transmission Date: 20111222
  Serious: Yes (Hospitalization)
  Sender: FDA-Public Use
  Company Number: FR-ALLERGAN-1108809US

PATIENT
  Age: 14 Year
  Sex: Female

DRUGS (4)
  1. BACTRIM DS [Concomitant]
  2. DEXAMETHASONE ACETATE [Concomitant]
  3. BOTOX [Suspect]
     Indication: MUSCLE SPASTICITY
     Dosage: 200 UNITS, SINGLE
     Dates: start: 20110516, end: 20110516
  4. TEMODAL [Concomitant]

REACTIONS (9)
  - MUSCULOSKELETAL PAIN [None]
  - PYREXIA [None]
  - PARALYSIS [None]
  - URINARY INCONTINENCE [None]
  - SENSORY LOSS [None]
  - FAECAL INCONTINENCE [None]
  - SKIN BURNING SENSATION [None]
  - TREMOR [None]
  - HEADACHE [None]
